FAERS Safety Report 16946895 (Version 1)
Quarter: 2019Q4

REPORT INFORMATION
  Report Type: Spontaneous
  Country: US (occurrence: US)
  Receive Date: 20191022
  Receipt Date: 20191022
  Transmission Date: 20200122
  Serious: No
  Sender: FDA-Public Use
  Company Number: NVSC2019US010538

PATIENT
  Age: 68 Year
  Sex: Male

DRUGS (1)
  1. CEFAZOLIN [Suspect]
     Active Substance: CEFAZOLIN
     Indication: ARTHRITIS BACTERIAL
     Dosage: UNK
     Route: 042

REACTIONS (1)
  - Drug ineffective [Unknown]
